FAERS Safety Report 11741255 (Version 3)
Quarter: 2016Q3

REPORT INFORMATION
  Report Type: Report from Study
  Country: US (occurrence: US)
  Receive Date: 20151116
  Receipt Date: 20160811
  Transmission Date: 20161109
  Serious: Yes (Hospitalization)
  Sender: FDA-Public Use
  Company Number: US-ROCHE-1660775

PATIENT
  Sex: Male
  Weight: 70.8 kg

DRUGS (19)
  1. NUTROPIN AQ [Suspect]
     Active Substance: SOMATROPIN
     Dosage: 6-7 INJECTIONS PER WEEK
     Route: 058
  2. NUTROPIN AQ [Suspect]
     Active Substance: SOMATROPIN
     Route: 058
  3. NUTROPIN AQ [Suspect]
     Active Substance: SOMATROPIN
     Indication: HYPOPITUITARISM
     Dosage: 6/7 DAYS, NUTROPIN AQ NUSPIN 20 MG
     Route: 058
  4. CORTEF [Concomitant]
     Active Substance: HYDROCORTISONE
     Dosage: EVENING
     Route: 065
  5. NUTROPIN AQ [Suspect]
     Active Substance: SOMATROPIN
     Route: 058
  6. DEPO-TESTOSTERONE [Suspect]
     Active Substance: TESTOSTERONE CYPIONATE
     Dosage: 2 WEEKS
     Route: 065
  7. L-THYROXINE [Concomitant]
     Active Substance: LEVOTHYROXINE
     Route: 065
  8. CORTEF [Concomitant]
     Active Substance: HYDROCORTISONE
     Dosage: MORNING
     Route: 065
  9. NUTROPIN AQ [Suspect]
     Active Substance: SOMATROPIN
     Route: 058
  10. L-THYROXINE [Concomitant]
     Active Substance: LEVOTHYROXINE
     Route: 065
  11. NUTROPIN AQ [Suspect]
     Active Substance: SOMATROPIN
     Route: 058
  12. NUTROPIN AQ [Suspect]
     Active Substance: SOMATROPIN
     Route: 058
  13. PEPCID AC [Concomitant]
     Active Substance: FAMOTIDINE
     Dosage: REFLUX
     Route: 065
  14. DEPO-TESTOSTERONE [Suspect]
     Active Substance: TESTOSTERONE CYPIONATE
     Indication: PRODUCT USED FOR UNKNOWN INDICATION
     Route: 065
  15. METFORMIN [Concomitant]
     Active Substance: METFORMIN HYDROCHLORIDE
     Route: 065
  16. NUTROPIN AQ [Suspect]
     Active Substance: SOMATROPIN
     Route: 058
  17. METFORMIN [Concomitant]
     Active Substance: METFORMIN HYDROCHLORIDE
     Route: 065
     Dates: start: 200403
  18. CORTEF [Concomitant]
     Active Substance: HYDROCORTISONE
     Dosage: AFTERNOON
     Route: 065
  19. CORTEF [Concomitant]
     Active Substance: HYDROCORTISONE
     Route: 065

REACTIONS (7)
  - Pneumonia aspiration [Unknown]
  - Fatigue [Unknown]
  - Epistaxis [Unknown]
  - Altered visual depth perception [Unknown]
  - Hyperhidrosis [Unknown]
  - Abnormal behaviour [Unknown]
  - Diarrhoea [Unknown]
